FAERS Safety Report 19918940 (Version 2)
Quarter: 2021Q4

REPORT INFORMATION
  Report Type: Spontaneous
  Country: GB (occurrence: GB)
  Receive Date: 20211004
  Receipt Date: 20211211
  Transmission Date: 20220304
  Serious: No
  Sender: FDA-Public Use
  Company Number: GB-BIONICAL EMAS-2021ETO000143

PATIENT

DRUGS (2)
  1. ALKINDI SPRINKLE [Suspect]
     Active Substance: HYDROCORTISONE
     Indication: Adrenal insufficiency
     Dosage: 2.5MG/1.5MG/0.5MG/1.0MG
     Route: 048
     Dates: start: 201902, end: 201906
  2. ALKINDI SPRINKLE [Suspect]
     Active Substance: HYDROCORTISONE
     Dosage: 3.0MG/1.5MG/0.5MG/1.0MG
     Route: 048
     Dates: start: 201906, end: 201909

REACTIONS (2)
  - Product use complaint [Unknown]
  - No adverse event [Unknown]
